FAERS Safety Report 22086260 (Version 1)
Quarter: 2023Q1

REPORT INFORMATION
  Report Type: Spontaneous
  Country: None (occurrence: US)
  Receive Date: 20230310
  Receipt Date: 20230310
  Transmission Date: 20230417
  Serious: Yes (Hospitalization, Other)
  Sender: FDA-Public Use
  Company Number: US-GREER Laboratories, Inc.-2138935

PATIENT
  Age: 25 Year
  Sex: Female
  Weight: 90 kg

DRUGS (10)
  1. RED MAPLE POLLEN [Suspect]
     Active Substance: ACER RUBRUM POLLEN
     Indication: Seasonal allergy
     Route: 058
     Dates: start: 20230131, end: 20230214
  2. 7 GRASS MIX [Suspect]
     Active Substance: AGROSTIS GIGANTEA POLLEN\ANTHOXANTHUM ODORATUM\DACTYLIS GLOMERATA\FESTUCA PRATENSIS\LOLIUM PERENNE\P
     Route: 058
     Dates: start: 20230131, end: 20230214
  3. SHORT RAGWEED [Suspect]
     Active Substance: AMBROSIA ARTEMISIIFOLIA POLLEN
     Route: 058
     Dates: start: 20230131, end: 20230214
  4. ASPERGILLUS FUMIGATUS [Suspect]
     Active Substance: ASPERGILLUS FUMIGATUS
     Route: 058
     Dates: start: 20230131, end: 20230214
  5. STANDARDIZED MITE, DERMATOPHAGOIDES PTERONYSSINUS [Suspect]
     Active Substance: DERMATOPHAGOIDES PTERONYSSINUS
     Route: 058
     Dates: start: 20230131, end: 20230214
  6. ASTELIN [Concomitant]
     Active Substance: AZELASTINE HYDROCHLORIDE
  7. ZADITOR [Concomitant]
     Active Substance: KETOTIFEN FUMARATE
  8. FLONASE [Concomitant]
     Active Substance: FLUTICASONE PROPIONATE
  9. ALLEGRA [Concomitant]
     Active Substance: FEXOFENADINE HYDROCHLORIDE
  10. SINGULAIR [Concomitant]
     Active Substance: MONTELUKAST SODIUM

REACTIONS (3)
  - Anaphylactic reaction [Recovered/Resolved with Sequelae]
  - Eye pruritus [Unknown]
  - Nasal congestion [Unknown]

NARRATIVE: CASE EVENT DATE: 20230214
